FAERS Safety Report 7378831-8 (Version None)
Quarter: 2011Q1

REPORT INFORMATION
  Report Type: 
  Country: None (occurrence: None)
  Receive Date: 20110328
  Receipt Date: 20110314
  Transmission Date: 20110831
  Serious: Yes (Other)
  Sender: FDA-Public Use
  Company Number: PHHY2011DE21049

PATIENT
  Age: 35 Year
  Sex: Male

DRUGS (1)
  1. ZOMETA [Suspect]
     Indication: PROSTATE CANCER METASTATIC
     Dosage: 4 MG, DAILY
     Route: 042
     Dates: start: 20110308, end: 20110311

REACTIONS (9)
  - THROMBOCYTOPENIA [None]
  - INAPPROPRIATE SCHEDULE OF DRUG ADMINISTRATION [None]
  - SEPSIS [None]
  - EXPOSURE TO CONTAMINATED DEVICE [None]
  - PYREXIA [None]
  - ELECTROLYTE IMBALANCE [None]
  - HYPOCALCAEMIA [None]
  - PANCYTOPENIA [None]
  - LEUKOPENIA [None]
